FAERS Safety Report 9882113 (Version 1)
Quarter: 2014Q1

REPORT INFORMATION
  Report Type: Report from Study
  Country: US (occurrence: US)
  Receive Date: 20140207
  Receipt Date: 20140207
  Transmission Date: 20141002
  Serious: Yes (Hospitalization)
  Sender: FDA-Public Use
  Company Number: US-SA-2013SA108864

PATIENT
  Age: 54 Year
  Sex: Female
  Weight: 92 kg

DRUGS (7)
  1. AUBAGIO [Suspect]
     Indication: MULTIPLE SCLEROSIS
     Route: 048
     Dates: start: 20131013
  2. AUBAGIO [Suspect]
     Indication: MULTIPLE SCLEROSIS
     Route: 048
  3. REBIF [Concomitant]
     Indication: MULTIPLE SCLEROSIS
     Dates: start: 2010
  4. AVONEX [Concomitant]
     Indication: MULTIPLE SCLEROSIS
     Dosage: DOSE:1 UNIT(S)
     Dates: start: 2010
  5. MORPHINE [Concomitant]
     Indication: SURGERY
     Dates: start: 201206
  6. ERYTHROMYCIN [Concomitant]
     Indication: SINUSITIS
  7. DOXYCYCLINE [Concomitant]

REACTIONS (9)
  - Toe operation [Unknown]
  - Post procedural infection [Unknown]
  - Asthenia [Unknown]
  - Muscle spasms [Unknown]
  - Fatigue [Unknown]
  - Pain in extremity [Unknown]
  - Depression [Unknown]
  - Chills [Not Recovered/Not Resolved]
  - Epistaxis [Recovered/Resolved]
